FAERS Safety Report 8547811-9 (Version None)
Quarter: 2012Q3

REPORT INFORMATION
  Report Type: 
  Country: None (occurrence: None)
  Receive Date: 20120727
  Receipt Date: 20120206
  Transmission Date: 20120928
  Serious: Yes (Hospitalization, Disabling)
  Sender: FDA-Public Use
  Company Number: US-ASTRAZENECA-2012SE07793

PATIENT
  Age: 35 Year
  Sex: Male

DRUGS (3)
  1. QUETIAPINE [Suspect]
     Indication: SCHIZOPHRENIA
  2. HALOPERIDOL [Suspect]
     Indication: SCHIZOPHRENIA
  3. RISPERIDONE [Suspect]
     Indication: SCHIZOPHRENIA

REACTIONS (1)
  - TARDIVE DYSKINESIA [None]
